FAERS Safety Report 15052979 (Version 3)
Quarter: 2018Q3

REPORT INFORMATION
  Report Type: Spontaneous
  Country: GB (occurrence: GB)
  Receive Date: 20180622
  Receipt Date: 20180920
  Transmission Date: 20181010
  Serious: Yes (Death, Life-Threatening, Hospitalization)
  Sender: FDA-Public Use
  Company Number: GB-JNJFOC-20180624136

PATIENT
  Age: 72 Year
  Sex: Male
  Weight: 71 kg

DRUGS (9)
  1. DARZALEX [Suspect]
     Active Substance: DARATUMUMAB
     Indication: PLASMA CELL MYELOMA RECURRENT
     Route: 042
     Dates: start: 20180516, end: 20180516
  2. PARACETAMOL [Concomitant]
     Active Substance: ACETAMINOPHEN
  3. LANSOPRAZOLE. [Concomitant]
     Active Substance: LANSOPRAZOLE
  4. DARZALEX [Suspect]
     Active Substance: DARATUMUMAB
     Indication: PLASMA CELL MYELOMA RECURRENT
     Route: 042
     Dates: start: 20180517, end: 20180517
  5. ACICLOVIR [Concomitant]
     Active Substance: ACYCLOVIR
  6. CHLORPHENAMINE [Concomitant]
     Active Substance: CHLORPHENIRAMINE MALEATE
     Route: 042
  7. XARELTO [Concomitant]
     Active Substance: RIVAROXABAN
  8. METHYLPREDNISOLONE. [Concomitant]
     Active Substance: METHYLPREDNISOLONE
     Route: 042
  9. FUROSEMIDE. [Concomitant]
     Active Substance: FUROSEMIDE

REACTIONS (3)
  - Respiratory failure [Not Recovered/Not Resolved]
  - Infusion related reaction [Recovered/Resolved]
  - Pneumonitis [Fatal]

NARRATIVE: CASE EVENT DATE: 201805
